FAERS Safety Report 21800844 (Version 2)
Quarter: 2023Q1

REPORT INFORMATION
  Report Type: Spontaneous
  Country: FR (occurrence: None)
  Receive Date: 20221230
  Receipt Date: 20230102
  Transmission Date: 20230418
  Serious: Yes (Hospitalization)
  Sender: FDA-Public Use
  Company Number: 2022A414214

PATIENT
  Age: 75 Year
  Sex: Male
  Weight: 92 kg

DRUGS (4)
  1. ESOMEPRAZOLE [Suspect]
     Active Substance: ESOMEPRAZOLE
     Indication: Product used for unknown indication
     Dosage: 40 MILLIGRAM, 1/DAY
     Route: 048
     Dates: end: 20221130
  2. PREDNISONE [Suspect]
     Active Substance: PREDNISONE
     Indication: Ankylosing spondylitis
     Dosage: 10 MILLIGRAM, 1/DAY
     Route: 048
     Dates: start: 202203, end: 20221130
  3. INFLIXIMAB [Suspect]
     Active Substance: INFLIXIMAB
     Indication: Ankylosing spondylitis
     Dosage: 400 MILLIGRAM, EVERY 2 WEEKS
     Route: 042
     Dates: start: 20221019, end: 20221102
  4. METHOTREXATE SODIUM [Suspect]
     Active Substance: METHOTREXATE SODIUM
     Indication: Ankylosing spondylitis
     Dosage: 1 DOSAGE FORM, 1/WEEK
     Route: 058
     Dates: start: 202203

REACTIONS (1)
  - Cardiac failure [Recovering/Resolving]

NARRATIVE: CASE EVENT DATE: 20221101
